FAERS Safety Report 24278056 (Version 1)
Quarter: 2024Q3

REPORT INFORMATION
  Report Type: Spontaneous
  Country: AU (occurrence: AU)
  Receive Date: 20240903
  Receipt Date: 20240903
  Transmission Date: 20241016
  Serious: Yes (Death, Hospitalization, Other)
  Sender: MERCK
  Company Number: AU-009507513-2408AUS010794

PATIENT
  Age: 65 Year
  Sex: Male

DRUGS (17)
  1. PEMBROLIZUMAB [Suspect]
     Active Substance: PEMBROLIZUMAB
     Indication: Malignant melanoma
     Dosage: 2 UNK
     Route: 042
     Dates: start: 20231011, end: 20231011
  2. PEMBROLIZUMAB [Suspect]
     Active Substance: PEMBROLIZUMAB
     Dosage: 2 MILLIGRAM
     Route: 042
     Dates: start: 20231214, end: 20231214
  3. TEBENTAFUSP [Suspect]
     Active Substance: TEBENTAFUSP
     Indication: Malignant melanoma
     Dosage: 20 MICROGRAM
     Route: 042
     Dates: start: 20231011, end: 20231011
  4. MORPHINE [Concomitant]
     Active Substance: MORPHINE
  5. ACETAMINOPHEN [Concomitant]
     Active Substance: ACETAMINOPHEN
  6. PREGABALIN [Concomitant]
     Active Substance: PREGABALIN
  7. HALOPERIDOL [Concomitant]
     Active Substance: HALOPERIDOL
  8. CHOLECALCIFEROL [Concomitant]
     Active Substance: CHOLECALCIFEROL
  9. .ALPHA.-TOCOPHEROL ACETATE [Concomitant]
     Active Substance: .ALPHA.-TOCOPHEROL ACETATE
  10. HYOSONE [Concomitant]
  11. ATORVASTATIN [Concomitant]
     Active Substance: ATORVASTATIN
  12. ESOMEPRAZOLE [Concomitant]
     Active Substance: ESOMEPRAZOLE
  13. FEXOFENADINE [Concomitant]
     Active Substance: FEXOFENADINE HYDROCHLORIDE
  14. BETAMETHASONE VALERATE [Concomitant]
     Active Substance: BETAMETHASONE VALERATE
  15. AUGMENTIN FP [Concomitant]
  16. CREON [Concomitant]
     Active Substance: PANCRELIPASE AMYLASE\PANCRELIPASE LIPASE\PANCRELIPASE PROTEASE
  17. ONDANSETRON [Concomitant]
     Active Substance: ONDANSETRON

REACTIONS (3)
  - Cardiac arrest [Fatal]
  - Diarrhoea [Not Recovered/Not Resolved]
  - Vomiting [Unknown]

NARRATIVE: CASE EVENT DATE: 20231223
